FAERS Safety Report 7825562-3 (Version None)
Quarter: 2011Q4

REPORT INFORMATION
  Report Type: 
  Country: None (occurrence: None)
  Receive Date: 20111019
  Receipt Date: 20111013
  Transmission Date: 20120403
  Serious: Yes (Other)
  Sender: FDA-Public Use
  Company Number: US-ABBOTT-11P-163-0865175-00

PATIENT
  Weight: 127.12 kg

DRUGS (2)
  1. METHOTREXATE [Concomitant]
     Indication: PSORIATIC ARTHROPATHY
  2. HUMIRA [Suspect]
     Indication: PSORIATIC ARTHROPATHY
     Route: 058
     Dates: start: 20110801

REACTIONS (5)
  - PAIN IN JAW [None]
  - CHEST PAIN [None]
  - FATIGUE [None]
  - OESOPHAGEAL SPASM [None]
  - DYSPNOEA [None]
